FAERS Safety Report 24863893 (Version 2)
Quarter: 2025Q1

REPORT INFORMATION
  Report Type: Report from Study
  Country: GB (occurrence: GB)
  Receive Date: 20250120
  Receipt Date: 20250225
  Transmission Date: 20250408
  Serious: Yes (Death)
  Sender: UCB
  Company Number: GB-UCBSA-2024064946

PATIENT
  Sex: Male

DRUGS (1)
  1. BIMEKIZUMAB [Suspect]
     Active Substance: BIMEKIZUMAB
     Indication: Psoriasis
     Route: 058
     Dates: start: 202410

REACTIONS (2)
  - Hypersensitivity [Fatal]
  - Skin ulcer [Unknown]

NARRATIVE: CASE EVENT DATE: 20240101
